FAERS Safety Report 8419531-2 (Version None)
Quarter: 2012Q2

REPORT INFORMATION
  Report Type: 
  Country: None (occurrence: None)
  Receive Date: 20120607
  Receipt Date: 20120103
  Transmission Date: 20120825
  Serious: No
  Sender: FDA-Public Use
  Company Number: US-BRISTOL-MYERS SQUIBB COMPANY-16326316

PATIENT
  Age: 47 Year
  Sex: Male

DRUGS (7)
  1. SUSTIVA [Suspect]
     Indication: HIV INFECTION
  2. HYDROXYZINE PAMOATE [Concomitant]
  3. RISPERIDONE [Concomitant]
     Dates: start: 20111206
  4. BUPROPRION HCL [Concomitant]
  5. COMBIVIR [Concomitant]
     Dosage: 1DF:150-300 MG TABLETS.
  6. GABAPENTIN [Concomitant]
     Dates: start: 20111206
  7. MULTI-VITAMINS [Concomitant]
     Dates: start: 20111219

REACTIONS (1)
  - THROAT TIGHTNESS [None]
